FAERS Safety Report 4308181-5 (Version None)
Quarter: 2004Q1

REPORT INFORMATION
  Report Type: 
  Country: None (occurrence: None)
  Receive Date: 20040225
  Receipt Date: 20031009
  Transmission Date: 20041129
  Serious: Yes (Hospitalization, Disabling)
  Sender: FDA-Public Use
  Company Number: WAES 0310USA01331

PATIENT
  Age: 74 Year
  Sex: Female

DRUGS (3)
  1. ZOCOR [Suspect]
     Indication: LIPIDS ABNORMAL
     Dosage: 80 MG/DAILY/PO
     Route: 048
  2. LOPID [Concomitant]
  3. NIASPAN [Concomitant]

REACTIONS (2)
  - LIVER FUNCTION TEST ABNORMAL [None]
  - RHABDOMYOLYSIS [None]
